FAERS Safety Report 7632905-2 (Version None)
Quarter: 2011Q3

REPORT INFORMATION
  Report Type: 
  Country: None (occurrence: None)
  Receive Date: 20110725
  Receipt Date: 20110721
  Transmission Date: 20111222
  Serious: Yes (Hospitalization)
  Sender: FDA-Public Use
  Company Number: IL-ROCHE-750249

PATIENT
  Sex: Male

DRUGS (7)
  1. METHOXY POLYETHYLENE GLYCOL-EPOETIN BETA [Suspect]
     Dosage: LAST DOSE PRIOR TO SAE: 22 NOVEMBER 2010.
     Route: 042
     Dates: start: 20100322
  2. SIMVASTATIN [Concomitant]
     Dates: start: 20091115
  3. VALSARTAN [Concomitant]
     Dates: start: 20091115
  4. ASPIRIN [Concomitant]
     Dates: start: 20091115
  5. CINACALCET [Concomitant]
     Dates: start: 20091115
  6. ALPHA D3 [Concomitant]
     Dosage: DRUG NAME REPORTED AS ALFA D3
     Dates: start: 20091115
  7. ATENOLOL [Concomitant]
     Dates: start: 20091115

REACTIONS (1)
  - BRONCHOPNEUMONIA [None]
